FAERS Safety Report 22136092 (Version 2)
Quarter: 2023Q2

REPORT INFORMATION
  Report Type: Spontaneous
  Country: IT (occurrence: IT)
  Receive Date: 20230324
  Receipt Date: 20230406
  Transmission Date: 20230722
  Serious: Yes (Other)
  Sender: FDA-Public Use
  Company Number: IT-TEVA-2023-IT-2869861

PATIENT
  Sex: Male

DRUGS (1)
  1. ISOTRETINOIN [Suspect]
     Active Substance: ISOTRETINOIN
     Indication: Acne
     Dosage: 1 DOSAGE FORMS DAILY; DAILY DOSE(S) MAX 250 CRTS, 1 DOSAGE FORM PER DAY/1MONTH
     Route: 065

REACTIONS (1)
  - Intraocular pressure increased [Recovered/Resolved]
